FAERS Safety Report 6560363-8 (Version None)
Quarter: 2010Q1

REPORT INFORMATION
  Report Type: 
  Country: None (occurrence: None)
  Receive Date: 20100129
  Receipt Date: 20090922
  Transmission Date: 20100710
  Serious: No
  Sender: FDA-Public Use
  Company Number: US-ABBOTT-09P-163-0599044-00

PATIENT
  Sex: Female
  Weight: 105.78 kg

DRUGS (10)
  1. HUMIRA [Suspect]
     Indication: CROHN'S DISEASE
     Route: 058
     Dates: start: 20090826
  2. MERCAPTOPURINE [Concomitant]
     Indication: CROHN'S DISEASE
     Route: 048
  3. VERAPAMIL [Concomitant]
     Indication: HYPERTENSION
  4. LANTUS [Concomitant]
     Indication: DIABETES MELLITUS
     Route: 058
  5. GLYBURIDE [Concomitant]
     Indication: DIABETES MELLITUS
  6. AVANDIA [Concomitant]
     Indication: DIABETES MELLITUS
  7. LEXAPRO [Concomitant]
     Indication: DEPRESSION
  8. ANATRIPTOLINE [Concomitant]
     Indication: FIBROMYALGIA
  9. CLONAZEPAM [Concomitant]
     Indication: PANIC ATTACK
  10. UNKNOWN PAIN RELIEVER [Concomitant]
     Indication: PAIN

REACTIONS (5)
  - ASTHENIA [None]
  - DYSPNOEA [None]
  - FATIGUE [None]
  - NOREPINEPHRINE INCREASED [None]
  - PANIC ATTACK [None]
